FAERS Safety Report 4971729-1 (Version None)
Quarter: 2006Q2

REPORT INFORMATION
  Report Type: 
  Country: None (occurrence: None)
  Receive Date: 20060406
  Receipt Date: 20060317
  Transmission Date: 20061013
  Serious: Yes (Disabling)
  Sender: FDA-Public Use
  Company Number: US200603005184

PATIENT
  Age: 66 Year
  Sex: Female

DRUGS (3)
  1. HUMULIN N [Suspect]
     Indication: DIABETES MELLITUS
     Dosage: 35 U, 2/D, UNK
     Dates: start: 20050101
  2. HUMULIN R [Suspect]
     Indication: DIABETES MELLITUS
     Dates: start: 20050101
  3. GLUCOPHAGE ^UNS^ (METFORMIN HYDROCHLORIDE) [Concomitant]

REACTIONS (2)
  - BLINDNESS [None]
  - CONDITION AGGRAVATED [None]
